FAERS Safety Report 9162519 (Version 2)
Quarter: 2013Q1

REPORT INFORMATION
  Report Type: Spontaneous
  Country: JP (occurrence: JP)
  Receive Date: 20130314
  Receipt Date: 20130329
  Transmission Date: 20140127
  Serious: Yes (Other)
  Sender: FDA-Public Use
  Company Number: JP-PFIZER INC-2013086428

PATIENT
  Age: 25 Year
  Sex: Female

DRUGS (2)
  1. CHAMPIX [Suspect]
     Dosage: 1 MG, 2X/DAY
     Route: 048
     Dates: start: 20130213, end: 20130309
  2. RHYTHMY [Concomitant]
     Indication: INSOMNIA
     Dosage: UNK

REACTIONS (2)
  - Sudden hearing loss [Unknown]
  - Stress [Unknown]
